FAERS Safety Report 5067312-2 (Version None)
Quarter: 2006Q3

REPORT INFORMATION
  Report Type: 
  Country: None (occurrence: None)
  Receive Date: 20060714
  Receipt Date: 20060406
  Transmission Date: 20061208
  Serious: Yes (Hospitalization)
  Sender: FDA-Public Use
  Company Number: 2006SP001574

PATIENT
  Age: 86 Year
  Sex: Male
  Weight: 79.3795 kg

DRUGS (7)
  1. LUNESTA [Suspect]
     Dosage: SEE IMAGE
     Route: 048
     Dates: start: 20060101
  2. LUNESTA [Suspect]
     Dosage: SEE IMAGE
     Route: 048
     Dates: start: 20060101
  3. AMIODARONE [Concomitant]
  4. SYNTHROID [Concomitant]
  5. AMLODIPINE BESYLATE [Concomitant]
  6. WARFARIN SODIUM [Concomitant]
  7. LOVASTATIN [Concomitant]

REACTIONS (3)
  - DRUG INEFFECTIVE [None]
  - INITIAL INSOMNIA [None]
  - OSTEOARTHRITIS [None]
